FAERS Safety Report 19871276 (Version 1)
Quarter: 2021Q3

REPORT INFORMATION
  Report Type: Spontaneous
  Country: US (occurrence: US)
  Receive Date: 20210922
  Receipt Date: 20210922
  Transmission Date: 20211014
  Serious: No
  Sender: FDA-Public Use
  Company Number: None

PATIENT
  Age: 93 Year
  Sex: Female
  Weight: 67.95 kg

DRUGS (14)
  1. IBRANCE [Suspect]
     Active Substance: PALBOCICLIB
     Indication: BREAST CANCER
     Dosage: ?          OTHER FREQUENCY:QD FOR 21/28 DAYS;?
     Route: 048
     Dates: start: 20201027
  2. MULTIVITAMINS [Concomitant]
     Active Substance: VITAMINS
  3. VITAMIN D 5000IU [Concomitant]
  4. SYNTHROID [Concomitant]
     Active Substance: LEVOTHYROXINE SODIUM
  5. FLONASE ALLERGY RELIEF 50MCG/ACT [Concomitant]
  6. PREDNISONE 5MG [Concomitant]
     Active Substance: PREDNISONE
  7. CELECOXIB 200MG [Concomitant]
     Active Substance: CELECOXIB
  8. GABAPENTIN 100MG [Concomitant]
     Active Substance: GABAPENTIN
  9. FULVESTRANT 250MG/5ML [Concomitant]
  10. LORAZEPAM 0.5MG [Concomitant]
     Active Substance: LORAZEPAM
  11. FOLIC ACID 1MG [Concomitant]
     Active Substance: FOLIC ACID
  12. FENTANYL 37.5 MCG/HR [Concomitant]
  13. CALCIUM 600MG [Concomitant]
  14. RESTASIS MULTIDOSE 0.05% [Concomitant]

REACTIONS (1)
  - Rash erythematous [None]

NARRATIVE: CASE EVENT DATE: 20210922
